FAERS Safety Report 6668785-1 (Version None)
Quarter: 2010Q1

REPORT INFORMATION
  Report Type: 
  Country: None (occurrence: None)
  Receive Date: 20100322
  Receipt Date: 20100305
  Transmission Date: 20100710
  Serious: Yes (Disabling)
  Sender: FDA-Public Use
  Company Number: GAM-046-10-GB

PATIENT
  Age: 66 Year
  Sex: Male

DRUGS (7)
  1. OCTAGAM [Suspect]
     Indication: PRIMARY IMMUNODEFICIENCY SYNDROME
     Dosage: 30 G I.V.
     Route: 042
  2. ASPIRIN [Concomitant]
  3. ATORVASTATIN [Concomitant]
  4. CITALOPRAM HYDROBROMIDE [Concomitant]
  5. QVAR 80 [Concomitant]
  6. NASONEX (MOMETASONE) [Concomitant]
  7. PERSANTIN [Concomitant]

REACTIONS (6)
  - APHASIA [None]
  - ATAXIA [None]
  - BRADYPHRENIA [None]
  - CONDITION AGGRAVATED [None]
  - CONFUSIONAL STATE [None]
  - DYSKINESIA [None]
